FAERS Safety Report 4750276-6 (Version None)
Quarter: 2005Q3

REPORT INFORMATION
  Report Type: 
  Country: None (occurrence: None)
  Receive Date: 20050818
  Receipt Date: 20050803
  Transmission Date: 20060218
  Serious: Yes (Hospitalization, Other)
  Sender: FDA-Public Use
  Company Number: US-2005-003483

PATIENT
  Age: 47 Year
  Sex: Female
  Weight: 21.5912 kg

DRUGS (9)
  1. BETASERON [Suspect]
     Indication: MULTIPLE SCLEROSIS
     Dosage: 9.6 MIU, EVERY 2D, SUBCUTANEOUS
     Route: 058
     Dates: start: 20020901, end: 20040801
  2. VALIUM [Concomitant]
  3. TYLENOL W/CODEINE NO.4 (CODEINE PHOSPHATE) [Concomitant]
  4. ACEIPTIN A/D (MAGNESIUM HYDROXIDE, ALUMINIUM HYDROXIDE GEL, ACETYLSALI [Concomitant]
  5. NITROGLYCERIN ^A.L.^ [Concomitant]
  6. LEXAPRO [Concomitant]
  7. ASPIRIN [Concomitant]
  8. ADVAIR (FLUTICASONE PROPINATE, SALMETEROL XINAFOATE) INHALER [Concomitant]
  9. ALBUTEROL [Concomitant]

REACTIONS (14)
  - ARRHYTHMIA [None]
  - CHRONIC OBSTRUCTIVE PULMONARY DISEASE [None]
  - FEELING HOT [None]
  - HYPOAESTHESIA [None]
  - HYPOTHYROIDISM [None]
  - MYOCARDIAL INFARCTION [None]
  - NON-CARDIAC CHEST PAIN [None]
  - PALPITATIONS [None]
  - PARAESTHESIA [None]
  - POLLAKIURIA [None]
  - SINUS BRADYCARDIA [None]
  - SINUS TACHYCARDIA [None]
  - SYNCOPE [None]
  - WEIGHT FLUCTUATION [None]
